FAERS Safety Report 4849745-X (Version None)
Quarter: 2005Q4

REPORT INFORMATION
  Report Type: 
  Country: None (occurrence: None)
  Receive Date: 20051207
  Receipt Date: 20051205
  Transmission Date: 20060501
  Serious: Yes (Hospitalization)
  Sender: FDA-Public Use
  Company Number: TCI2005A04873

PATIENT
  Age: 45 Year
  Sex: Female

DRUGS (1)
  1. LEUPROLIDE ACETATE [Suspect]
     Indication: UTERINE LEIOMYOMA
     Dosage: 1.88 MG (1.88 MG, 1 IN 28 D), SUBCUTANEOUS
     Route: 058
     Dates: start: 20050921

REACTIONS (2)
  - PHOTOPSIA [None]
  - RETINAL VEIN OCCLUSION [None]
